FAERS Safety Report 9321551 (Version 1)
Quarter: 2013Q2

REPORT INFORMATION
  Report Type: Spontaneous
  Country: FI (occurrence: None)
  Receive Date: 20130528
  Receipt Date: 20130528
  Transmission Date: 20140414
  Serious: Yes (Death)
  Sender: FDA-Public Use
  Company Number: 2013P1006162

PATIENT
  Age: 67 Year
  Sex: Male
  Weight: 118 kg

DRUGS (3)
  1. FENTANYL [Suspect]
  2. BUPIVACAINE [Suspect]
     Indication: CHOLECYSTECTOMY
     Route: 008
  3. BUPIVACAINE [Suspect]
     Indication: CHOLECYSTECTOMY
     Route: 008

REACTIONS (3)
  - Circulatory collapse [None]
  - Brain injury [None]
  - Incorrect dose administered [None]
